FAERS Safety Report 8958633 (Version 1)
Quarter: 2012Q4

REPORT INFORMATION
  Report Type: Spontaneous
  Country: US (occurrence: None)
  Receive Date: 20121206
  Receipt Date: 20121206
  Transmission Date: 20130627
  Serious: Yes (Other)
  Sender: FDA-Public Use
  Company Number: None

PATIENT
  Age: 55 Year
  Sex: Female
  Weight: 57.15 kg

DRUGS (1)
  1. ATORVASTATIN 10 MG WATSON [Suspect]
     Indication: BLOOD CHOLESTEROL INCREASED
     Dosage: 10 mg qd po
     Route: 048
     Dates: start: 20120914, end: 20121129

REACTIONS (6)
  - Nausea [None]
  - Abdominal pain upper [None]
  - Myalgia [None]
  - Insomnia [None]
  - Anxiety [None]
  - Depression [None]
